FAERS Safety Report 7568265-5 (Version None)
Quarter: 2011Q2

REPORT INFORMATION
  Report Type: 
  Country: None (occurrence: None)
  Receive Date: 20110623
  Receipt Date: 20110620
  Transmission Date: 20111010
  Serious: Yes (Life-Threatening, Hospitalization)
  Sender: FDA-Public Use
  Company Number: DE-SANOFI-AVENTIS-2011SA039052

PATIENT
  Sex: Female

DRUGS (6)
  1. LEUCOVORIN CALCIUM [Concomitant]
     Indication: SQUAMOUS CELL CARCINOMA
     Route: 041
     Dates: start: 20100901, end: 20100901
  2. OXALIPLATIN [Suspect]
     Route: 041
     Dates: start: 20110428, end: 20110428
  3. LEUCOVORIN CALCIUM [Concomitant]
     Route: 041
     Dates: start: 20110428, end: 20110428
  4. FLUOROURACIL [Concomitant]
     Indication: SQUAMOUS CELL CARCINOMA
     Route: 041
     Dates: start: 20100901, end: 20100901
  5. OXALIPLATIN [Suspect]
     Indication: SQUAMOUS CELL CARCINOMA
     Route: 041
     Dates: start: 20100901, end: 20100901
  6. FLUOROURACIL [Concomitant]
     Route: 041
     Dates: start: 20110428, end: 20110428

REACTIONS (4)
  - RENAL FAILURE ACUTE [None]
  - PANCREATITIS [None]
  - MULTI-ORGAN FAILURE [None]
  - ANAEMIA HAEMOLYTIC AUTOIMMUNE [None]
